FAERS Safety Report 8601213 (Version 2)
Quarter: 2012Q4

REPORT INFORMATION
  Report Type: 
  Country: US (occurrence: US)
  Receive Date: 20120606
  Receipt Date: 20121012
  Transmission Date: 20130627
  Serious: Yes (Other)
  Sender: FDA-Public Use
  Company Number: US-CELGENEUS-163-21880-12060245

PATIENT
  Sex: Female

DRUGS (5)
  1. REVLIMID [Suspect]
     Indication: MULTIPLE MYELOMA
     Dosage: 15 Milligram
     Route: 048
     Dates: start: 201111
  2. REVLIMID [Suspect]
     Dosage: 20 Milligram
     Route: 048
     Dates: start: 20111114
  3. REVLIMID [Suspect]
     Dosage: 25 Milligram
     Route: 048
     Dates: start: 201112
  4. REVLIMID [Suspect]
     Dosage: 20 Milligram
     Route: 048
     Dates: start: 201202
  5. REVLIMID [Suspect]
     Dosage: 10 Milligram
     Route: 048
     Dates: start: 201208

REACTIONS (5)
  - Heart valve incompetence [Unknown]
  - Renal impairment [Unknown]
  - Full blood count decreased [Unknown]
  - Fatigue [Unknown]
  - Oedema peripheral [Unknown]
